FAERS Safety Report 9774286 (Version 3)
Quarter: 2013Q4

REPORT INFORMATION
  Report Type: Report from Study
  Country: CA (occurrence: CA)
  Receive Date: 20131220
  Receipt Date: 20131223
  Transmission Date: 20140711
  Serious: Yes (Other)
  Sender: FDA-Public Use
  Company Number: CA-ROCHE-1248974

PATIENT
  Age: 53 Year
  Sex: Female
  Weight: 117.9 kg

DRUGS (14)
  1. RITUXAN [Suspect]
     Indication: RHEUMATOID ARTHRITIS
     Route: 042
     Dates: start: 20130710
  2. DIPHENHYDRAMINE HCL [Concomitant]
     Route: 065
     Dates: start: 20130710
  3. ACETAMINOPHEN [Concomitant]
     Route: 065
     Dates: start: 20130710
  4. PREDNISONE [Concomitant]
     Route: 048
     Dates: start: 20130710
  5. PLAQUENIL [Concomitant]
  6. ASA [Concomitant]
  7. FOSAVANCE [Concomitant]
  8. CIPRALEX [Concomitant]
  9. SYMBICORT [Concomitant]
  10. VENTOLIN [Concomitant]
  11. TYLENOL [Concomitant]
  12. CALCIUM CITRATE [Concomitant]
  13. VITAMIN C [Concomitant]
  14. VITAMIN B50 [Concomitant]

REACTIONS (7)
  - Tendon pain [Unknown]
  - Vocal cord disorder [Recovering/Resolving]
  - Arthralgia [Recovering/Resolving]
  - Abdominal pain upper [Recovering/Resolving]
  - Fatigue [Recovering/Resolving]
  - Lymphadenopathy [Recovering/Resolving]
  - Weight increased [Unknown]
